FAERS Safety Report 4975965-X (Version None)
Quarter: 2006Q2

REPORT INFORMATION
  Report Type: 
  Country: None (occurrence: None)
  Receive Date: 20060411
  Receipt Date: 20060405
  Transmission Date: 20061013
  Serious: Yes (Death, Life-Threatening, Hospitalization)
  Sender: FDA-Public Use
  Company Number: 2006038249

PATIENT
  Age: 76 Year
  Sex: Male
  Weight: 82.6 kg

DRUGS (11)
  1. SUTENT [Suspect]
     Indication: RENAL CELL CARCINOMA STAGE UNSPECIFIED
     Dosage: 100 MG (50 MG, 1 IN 1 D), ORAL
     Route: 048
     Dates: start: 20051128, end: 20060315
  2. TOPROL-XL [Concomitant]
  3. HYDROCHLOROTHIAZIDE [Concomitant]
  4. LIPITOR [Concomitant]
  5. CENTRUM (MINERALS NOS, VITAMINS NOS) [Concomitant]
  6. VITAMIN C (VITAMIN C) [Concomitant]
  7. ALL OTHER THERAPEUTIC PRODUCTS (ALL OTHER THERAPEUTIC PRODUCTS) [Concomitant]
  8. ZANTAC [Concomitant]
  9. NEXIUM [Concomitant]
  10. ARANESP [Concomitant]
  11. HYDROCODONE BITARTRATE [Concomitant]

REACTIONS (10)
  - DEHYDRATION [None]
  - DIARRHOEA [None]
  - DISSEMINATED INTRAVASCULAR COAGULATION [None]
  - HEPATIC FAILURE [None]
  - MULTI-ORGAN FAILURE [None]
  - NAUSEA [None]
  - REFUSAL OF TREATMENT BY PATIENT [None]
  - RENAL FAILURE ACUTE [None]
  - THROMBOCYTOPENIA [None]
  - VOMITING [None]
